FAERS Safety Report 23890530 (Version 1)
Quarter: 2024Q2

REPORT INFORMATION
  Report Type: Spontaneous
  Country: NL (occurrence: NL)
  Receive Date: 20240523
  Receipt Date: 20240523
  Transmission Date: 20240716
  Serious: Yes (Other)
  Sender: FDA-Public Use
  Company Number: None

PATIENT
  Age: 67 Year
  Sex: Male
  Weight: 62.2 kg

DRUGS (17)
  1. SPIRONOLACTONE [Suspect]
     Active Substance: SPIRONOLACTONE
     Indication: Cardiac failure
     Dosage: 1XDD? / BRAND NAME NOT SPECIFIED
     Route: 065
     Dates: start: 20240411, end: 20240419
  2. LISINOPRIL [Concomitant]
     Active Substance: LISINOPRIL
     Indication: Product used for unknown indication
     Dosage: TABLET, 5 MG (MILLIGRAM)? / BRAND NAME NOT SPECIFIED
     Route: 065
  3. FERROUS FUMARATE [Concomitant]
     Active Substance: FERROUS FUMARATE
     Indication: Product used for unknown indication
     Dosage: TABLET, 200 MG (MILLIGRAM)?? / BRAND NAME NOT SPECIFIED
     Route: 065
  4. CALCIUM GLUCONATE [Concomitant]
     Active Substance: CALCIUM GLUCONATE
     Indication: Product used for unknown indication
     Dosage: DOSAGE: 10 MG/ML EYE WASH, 10 MG/ML (MILLIGRAMS PER MILLILITER)?/ BRAND NAME NOT SPECIFIED
     Route: 065
  5. INSULIN GLARGINE [Concomitant]
     Active Substance: INSULIN GLARGINE
     Indication: Product used for unknown indication
     Dosage: INJECTION FLUID, 100 UNITS/ML (UNITS PER MILLILITER)?100U/ML PEN 3ML
     Route: 065
  6. ADROVANCE [Concomitant]
     Active Substance: ALENDRONATE SODIUM\CHOLECALCIFEROL
     Indication: Product used for unknown indication
     Dosage: TABLET, 70 MG (MILLIGRAM)/5600 UNITS?ALENDRONIC ACID/COLECALCIFEROL TABLET 70MG/5600IE
     Route: 065
  7. ASPIRIN [Concomitant]
     Active Substance: ASPIRIN
     Indication: Product used for unknown indication
     Dosage: TABLET, 250/250/65 MG (MILLIGRAM)?PARACETAMOL/COF TAB 250/250/65MG / BRAND NAME NOT SPECIFIED
     Route: 065
  8. COLGATE DURAPHAT [Concomitant]
     Active Substance: SODIUM FLUORIDE
     Indication: Product used for unknown indication
     Dosage: TOOTHPASTE, 11.051 MG/G (MILLIGRAMS PER GRAM)? TOOTHPASTE 5000PPM,DOSE : 11.051 MG/G
     Route: 065
  9. ATORVASTATIN [Concomitant]
     Active Substance: ATORVASTATIN
     Indication: Product used for unknown indication
     Dosage: TABLET, 20 MG (MILLIGRAM)?/ BRAND NAME NOT SPECIFIED
     Route: 065
  10. SCEMBLIX [Concomitant]
     Active Substance: ASCIMINIB HYDROCHLORIDE
     Indication: Product used for unknown indication
     Dosage: 200MG
     Route: 065
  11. METOPROLOL [Concomitant]
     Active Substance: METOPROLOL
     Indication: Product used for unknown indication
     Dosage: MODIFIED-RELEASE TABLET, 50 MG (MILLIGRAM)? / BRAND NAME NOT SPECIFIED
     Route: 065
  12. DESOXIMETASONE [Concomitant]
     Active Substance: DESOXIMETASONE
     Indication: Product used for unknown indication
     Dosage: CREAM, 2.5 MG/G (MILLIGRAM PER GRAM)? / BRAND NAME NOT SPECIFIED, DOSE : 2.5 MG/G
     Route: 065
  13. PANTOPRAZOLE [Concomitant]
     Active Substance: PANTOPRAZOLE
     Indication: Product used for unknown indication
     Dosage: GASTRO-RESISTANT TABLET, 40 MG (MILLIGRAM)?/ BRAND NAME NOT SPECIFIED
     Route: 065
  14. DAPAGLIFLOZIN [Concomitant]
     Active Substance: DAPAGLIFLOZIN
     Indication: Product used for unknown indication
     Dosage: TABLET, 10 MG (MILLIGRAM)? / BRAND NAME NOT SPECIFIED
     Route: 065
  15. EPOETIN ALFA [Concomitant]
     Active Substance: ERYTHROPOIETIN
     Indication: Product used for unknown indication
     Dosage: INJECTION FLUID, 10000 IU/ML (UNITS PER MILLILITER)?EPOETINE ALFA INJVLST 10,000IE/ML / BRAND NAM...
     Route: 065
  16. FUCIDIN [Concomitant]
     Active Substance: FUSIDATE SODIUM
     Indication: Product used for unknown indication
     Dosage: CREAM, 20 MG/G (MILLIGRAM PER GRAM), DOSE : 20 MG/G
  17. ELIQUIS [Concomitant]
     Active Substance: APIXABAN
     Indication: Product used for unknown indication
     Dosage: TABLET, 5 MG (MILLIGRAM)
     Route: 065

REACTIONS (1)
  - Hyperkalaemia [Recovered/Resolved]
